FAERS Safety Report 8321739-1 (Version None)
Quarter: 2012Q2

REPORT INFORMATION
  Report Type: 
  Country: None (occurrence: None)
  Receive Date: 20120430
  Receipt Date: 20120423
  Transmission Date: 20120825
  Serious: Yes (Death)
  Sender: FDA-Public Use
  Company Number: PHEH2012US008577

PATIENT
  Age: 54 Year
  Sex: Female

DRUGS (2)
  1. PROZAC [Concomitant]
  2. GILENYA [Suspect]
     Route: 048
     Dates: start: 20110801

REACTIONS (3)
  - ATAXIA [None]
  - DEATH [None]
  - BACK PAIN [None]
